FAERS Safety Report 14176393 (Version 4)
Quarter: 2018Q1

REPORT INFORMATION
  Report Type: Spontaneous
  Country: CA (occurrence: CA)
  Receive Date: 20171109
  Receipt Date: 20180102
  Transmission Date: 20180508
  Serious: Yes (Hospitalization)
  Sender: FDA-Public Use
  Company Number: CA-IPSEN BIOPHARMACEUTICALS, INC.-2017-13942

PATIENT
  Age: 70 Year
  Sex: Male
  Weight: 72.3 kg

DRUGS (7)
  1. NOCDURNA [Concomitant]
     Indication: PROSTATOMEGALY
     Route: 048
     Dates: start: 20150919
  2. ECS COTAZYME [Concomitant]
     Indication: CARCINOID TUMOUR
     Route: 048
     Dates: start: 201207
  3. LX1606 [Concomitant]
     Indication: CARCINOID SYNDROME
     Route: 048
     Dates: start: 20140813, end: 20170923
  4. QUESTRAN [Concomitant]
     Active Substance: CHOLESTYRAMINE
     Indication: CARCINOID TUMOUR
     Route: 048
     Dates: start: 201208
  5. SANDOZ-TAMSULOSIN [Concomitant]
     Active Substance: TAMSULOSIN
     Indication: PROSTATOMEGALY
     Route: 048
     Dates: start: 2014
  6. SOMATULINE AUTOGEL [Suspect]
     Active Substance: LANREOTIDE ACETATE
     Indication: CARCINOID TUMOUR
     Dosage: 120 MG
     Route: 058
     Dates: start: 201606
  7. ROBAXACET [Concomitant]
     Active Substance: ACETAMINOPHEN\METHOCARBAMOL
     Indication: ARTHRALGIA
     Route: 048
     Dates: start: 20140111

REACTIONS (12)
  - Cough [Unknown]
  - Gallbladder perforation [Recovering/Resolving]
  - Post procedural haematoma [Recovered/Resolved]
  - Post procedural haemorrhage [Recovered/Resolved]
  - Post procedural oedema [Recovered/Resolved]
  - Nausea [Unknown]
  - Pyrexia [Recovered/Resolved]
  - Cholecystitis [Recovering/Resolving]
  - Intra-abdominal fluid collection [Recovered/Resolved]
  - Peripheral swelling [Recovered/Resolved]
  - Asthenia [Unknown]
  - Inappropriate schedule of drug administration [Unknown]

NARRATIVE: CASE EVENT DATE: 2017
